FAERS Safety Report 6993857-1 (Version None)
Quarter: 2010Q3

REPORT INFORMATION
  Report Type: 
  Country: None (occurrence: None)
  Receive Date: 20100917
  Receipt Date: 20071119
  Transmission Date: 20110219
  Serious: Yes (Hospitalization, Other)
  Sender: FDA-Public Use
  Company Number: US-ASTRAZENECA-2006UW26511

PATIENT
  Age: 44 Year
  Sex: Female
  Weight: 61.2 kg

DRUGS (16)
  1. SEROQUEL [Suspect]
     Indication: BIPOLAR DISORDER
     Dosage: 200 MG, 600 MG, 800 MG
     Route: 048
     Dates: start: 19990101
  2. SEROQUEL [Suspect]
     Indication: SCHIZOAFFECTIVE DISORDER
     Dosage: 200 MG, 600 MG, 800 MG
     Route: 048
     Dates: start: 19990101
  3. SEROQUEL [Suspect]
     Dosage: 100 MG TO 600 MG
     Route: 048
     Dates: start: 20020101
  4. SEROQUEL [Suspect]
     Dosage: 100 MG TO 600 MG
     Route: 048
     Dates: start: 20020101
  5. DEXATRIM [Concomitant]
     Dates: start: 19990101, end: 20020101
  6. CLOZARIL [Concomitant]
  7. HALDOL [Concomitant]
     Dosage: 5 MG EVERY FOUR HOUR
     Route: 048
     Dates: start: 20041223
  8. RISPERDAL [Concomitant]
  9. THORAZINE [Concomitant]
  10. TRILAFON [Concomitant]
  11. ZYPREXA [Concomitant]
  12. DEPAKOTE [Concomitant]
     Route: 048
     Dates: start: 20020108
  13. EFFEXOR [Concomitant]
     Route: 048
     Dates: start: 20020110
  14. COGENTIN [Concomitant]
     Dosage: 2 MG, EVERY FOUR HOUR
     Route: 048
     Dates: start: 20041223
  15. ATIVAN [Concomitant]
     Dosage: 1 - 2 MG AS REQUIRED
     Route: 048
     Dates: start: 20041223
  16. NEURONTIN [Concomitant]
     Route: 048
     Dates: start: 20041223

REACTIONS (2)
  - DIABETES MELLITUS [None]
  - OVERDOSE [None]
